FAERS Safety Report 12069025 (Version 1)
Quarter: 2016Q1

REPORT INFORMATION
  Report Type: Spontaneous
  Country: ES (occurrence: ES)
  Receive Date: 20160211
  Receipt Date: 20160211
  Transmission Date: 20160526
  Serious: Yes (Other)
  Sender: FDA-Public Use
  Company Number: ES-PFIZER INC-2016068993

PATIENT
  Age: 65 Year
  Sex: Male

DRUGS (1)
  1. SUNITINIB MALATE. [Suspect]
     Active Substance: SUNITINIB MALATE
     Indication: CLEAR CELL RENAL CELL CARCINOMA
     Dosage: UNK
     Dates: start: 201010, end: 2011

REACTIONS (4)
  - Atrial fibrillation [Unknown]
  - Epistaxis [Unknown]
  - Asthenia [Unknown]
  - Hypertension [Unknown]
